FAERS Safety Report 13737224 (Version 1)
Quarter: 2017Q3

REPORT INFORMATION
  Report Type: Spontaneous
  Country: US (occurrence: US)
  Receive Date: 20170710
  Receipt Date: 20170710
  Transmission Date: 20171127
  Serious: No
  Sender: FDA-Public Use
  Company Number: US-SAOL THERAPEUTICS-2016SAO00085

PATIENT
  Age: 29 Year
  Sex: Female

DRUGS (5)
  1. BACLOFEN. [Suspect]
     Active Substance: BACLOFEN
     Dosage: 105.7 ?G, \DAY
     Route: 037
     Dates: start: 20160506
  2. ZANAFLEX [Suspect]
     Active Substance: TIZANIDINE HYDROCHLORIDE
     Dosage: 4 MG TABLET, UP TO 4X/DAY
     Route: 048
  3. BACLOFEN. [Suspect]
     Active Substance: BACLOFEN
     Indication: MUSCLE SPASTICITY
     Dosage: 96.1 ?G, \DAY
     Route: 037
     Dates: end: 20160506
  4. BACLOFEN. [Suspect]
     Active Substance: BACLOFEN
     Dosage: 10 MG, 3X/DAY
     Route: 048
  5. DEPO-PROVERA [Suspect]
     Active Substance: MEDROXYPROGESTERONE ACETATE
     Dosage: 150 MG/ML INJECTION, 4X/YEAR
     Route: 030

REACTIONS (3)
  - Device failure [Recovered/Resolved]
  - Muscle spasticity [Recovering/Resolving]
  - Medical device site discomfort [Unknown]

NARRATIVE: CASE EVENT DATE: 20160506
